FAERS Safety Report 8916813 (Version 1)
Quarter: 2012Q4

REPORT INFORMATION
  Report Type: 
  Country: ES (occurrence: US)
  Receive Date: 20121120
  Receipt Date: 20121120
  Transmission Date: 20130627
  Serious: Yes (Other)
  Sender: FDA-Public Use
  Company Number: US-RANBAXY-2012US-62295

PATIENT
  Age: 70 Year
  Sex: Male

DRUGS (1)
  1. FLECAINIDE ACETATE [Suspect]
     Indication: PRODUCT USED FOR UNKNOWN INDICATION
     Dosage: UNK
     Route: 065

REACTIONS (3)
  - Brugada syndrome [Recovered/Resolved]
  - Accidental overdose [Recovered/Resolved]
  - Medication error [Recovered/Resolved]
